FAERS Safety Report 20157834 (Version 3)
Quarter: 2022Q2

REPORT INFORMATION
  Report Type: Report from Study
  Country: CN (occurrence: None)
  Receive Date: 20211207
  Receipt Date: 20220401
  Transmission Date: 20220721
  Serious: Yes (Hospitalization)
  Sender: FDA-Public Use
  Company Number: 2021A834141

PATIENT
  Age: 71 Year
  Sex: Male

DRUGS (9)
  1. DURVALUMAB [Suspect]
     Active Substance: DURVALUMAB
     Indication: Oesophageal squamous cell carcinoma
     Dosage: 1500.0 MG
     Route: 042
     Dates: start: 20211027, end: 20211027
  2. CISPLATIN [Suspect]
     Active Substance: CISPLATIN
     Indication: Oesophageal squamous cell carcinoma
     Dosage: 40.0 MG/M2
     Route: 065
     Dates: start: 20211027, end: 20211027
  3. CISPLATIN [Suspect]
     Active Substance: CISPLATIN
     Indication: Oesophageal squamous cell carcinoma
     Dosage: 40.0 MG/M2
     Route: 065
     Dates: start: 20211104, end: 20211104
  4. CISPLATIN [Suspect]
     Active Substance: CISPLATIN
     Indication: Oesophageal squamous cell carcinoma
     Dosage: 40.0 MG/M2
     Route: 065
     Dates: start: 20211111, end: 20211111
  5. CISPLATIN [Suspect]
     Active Substance: CISPLATIN
     Indication: Oesophageal squamous cell carcinoma
     Dosage: 40.0 MG/M2
     Route: 065
     Dates: start: 20211118, end: 20211118
  6. CISPLATIN [Suspect]
     Active Substance: CISPLATIN
     Indication: Oesophageal squamous cell carcinoma
     Dosage: 40.0 MG/M2
     Route: 065
     Dates: start: 20211125, end: 20211125
  7. CAPECITABINE [Suspect]
     Active Substance: CAPECITABINE
     Indication: Oesophageal squamous cell carcinoma
     Route: 065
     Dates: start: 20211028, end: 20211125
  8. RADIATION THERAPY [Suspect]
     Active Substance: RADIATION THERAPY
     Indication: Oesophageal squamous cell carcinoma
     Route: 065
  9. ALUMINUM MAGNESIUM AND SUSPENSION [Concomitant]
     Indication: Gastritis
     Dates: start: 20211022, end: 20211022

REACTIONS (1)
  - Myelosuppression [Recovered/Resolved]

NARRATIVE: CASE EVENT DATE: 20211109
